FAERS Safety Report 11008483 (Version 1)
Quarter: 2015Q2

REPORT INFORMATION
  Report Type: Spontaneous
  Country: DE (occurrence: None)
  Receive Date: 20150408
  Receipt Date: 20150408
  Transmission Date: 20150821
  Serious: Yes (Death)
  Sender: FDA-Public Use
  Company Number: NSR_02031_2015

PATIENT
  Age: 56 Year
  Sex: Male

DRUGS (21)
  1. HYDROXYZINE (HYDROXYZINE) [Suspect]
     Active Substance: HYDROXYZINE HYDROCHLORIDE
     Indication: PRODUCT USED FOR UNKNOWN INDICATION
     Dosage: DF (NOT THE PRESCRIBED AMOUNT) NASAL
  2. LEVAMISOLE [Suspect]
     Active Substance: LEVAMISOLE
     Indication: PRODUCT USED FOR UNKNOWN INDICATION
     Dosage: DF (NOT THE PRESCRIBED AMOUNT) NASAL
  3. ALCOHOL (ALCOHOL) [Suspect]
     Active Substance: ALCOHOL
     Indication: PRODUCT USED FOR UNKNOWN INDICATION
     Dosage: DF (NOT THE PRESCRIBED AMOUNT) NASAL
  4. THEOBROMINE [Suspect]
     Active Substance: THEOBROMINE
     Indication: PRODUCT USED FOR UNKNOWN INDICATION
     Dosage: DF (NOT THE PRESCRIBED AMOUNT) NASAL
  5. THEOPHYLLINE (THEOPHYLLINE) [Suspect]
     Active Substance: THEOPHYLLINE ANHYDROUS
     Indication: PRODUCT USED FOR UNKNOWN INDICATION
     Dosage: DF (NOT THE PRESCRIBED AMOUNT) NASAL
  6. HEROIN [Suspect]
     Active Substance: DIACETYLMORPHINE
     Indication: PRODUCT USED FOR UNKNOWN INDICATION
     Dosage: DF (NOT THE PRESCRIBED AMOUNT) NASAL
  7. COCAINE (COCAINE) [Suspect]
     Active Substance: COCAINE
     Indication: PRODUCT USED FOR UNKNOWN INDICATION
     Dosage: DF (NOT THE PRESCRIBED AMOUNT) NASAL
  8. SILDENAFIL (SILDENAFIL) [Suspect]
     Active Substance: SILDENAFIL
     Indication: PRODUCT USED FOR UNKNOWN INDICATION
     Dosage: DF (NOT THE PRESCRIBED AMOUNT) NASAL
  9. CAFFEINE (CAFFEINE) [Suspect]
     Active Substance: CAFFEINE
     Indication: PRODUCT USED FOR UNKNOWN INDICATION
     Dosage: DF (NOT THE PRESCRIBED AMOUNT) NASAL
  10. DOXYLAMINE (DOXYLAMINE) [Suspect]
     Active Substance: DOXYLAMINE
     Indication: PRODUCT USED FOR UNKNOWN INDICATION
     Dosage: DF (NOT THE PRESCRIBED AMOUNT) NASAL
  11. MONOACETYLMORPHINE [Suspect]
     Active Substance: 6-ACETYLMORPHINE
     Indication: PRODUCT USED FOR UNKNOWN INDICATION
     Dosage: DF (NOT THE PRESCRIBED AMOUNT) NASAL
  12. CODEINE [Suspect]
     Active Substance: CODEINE
     Indication: PRODUCT USED FOR UNKNOWN INDICATION
     Dosage: DF (NOT THE PRESCRIBED AMOUNT) NASAL
  13. LIDOCAINE (LIDOCAINE) [Suspect]
     Active Substance: LIDOCAINE
     Indication: PRODUCT USED FOR UNKNOWN INDICATION
     Dosage: DF (NOT THE PRESCRIBED AMOUNT) NASAL
  14. COCAETHYLENE [Suspect]
     Active Substance: COCAETHYLENE
     Indication: PRODUCT USED FOR UNKNOWN INDICATION
     Dosage: DF (NOT THE PRESCRIBED AMOUNT) NASAL
  15. NOSCAPINE [Suspect]
     Active Substance: NOSCAPINE
     Indication: PRODUCT USED FOR UNKNOWN INDICATION
     Dosage: DF (NOT THE PRESCRIBED AMOUNT) NASAL
  16. PARACETAMOL (PARACETAMOL) [Suspect]
     Active Substance: ACETAMINOPHEN
     Indication: PRODUCT USED FOR UNKNOWN INDICATION
     Dosage: DF (NOT THE PRESCRIBED AMOUNT) NASAL
  17. PAPAVERINE [Suspect]
     Active Substance: PAPAVERINE
     Indication: PRODUCT USED FOR UNKNOWN INDICATION
     Dosage: DF (NOT THE PRESCRIBED AMOUNT) NASAL
  18. BENZOYLECGONINE [Suspect]
     Active Substance: BENZOYLECGONINE
     Indication: PRODUCT USED FOR UNKNOWN INDICATION
     Dosage: DF (NOT THE PRESCRIBED AMOUNT) NASAL
  19. PHENACETIN [Suspect]
     Active Substance: PHENACETIN
     Indication: PRODUCT USED FOR UNKNOWN INDICATION
     Dosage: DF (NOT THE PRESCRIBED AMOUNT) NASAL
  20. MORPHINE (MORPHINE) [Suspect]
     Active Substance: MORPHINE
     Indication: PRODUCT USED FOR UNKNOWN INDICATION
     Dosage: DF (NOT THE PRESCRIBED AMOUNT) NASAL
  21. COTININE [Suspect]
     Active Substance: COTININE
     Indication: PRODUCT USED FOR UNKNOWN INDICATION
     Dosage: DF (NOT THE PRESCRIBED AMOUNT) NASAL

REACTIONS (4)
  - Cardiac arrest [None]
  - Dyspnoea [None]
  - Fall [None]
  - Apnoea [None]
